FAERS Safety Report 7341892-6 (Version None)
Quarter: 2011Q1

REPORT INFORMATION
  Report Type: 
  Country: None (occurrence: None)
  Receive Date: 20110309
  Receipt Date: 20110228
  Transmission Date: 20110831
  Serious: Yes (Death, Other)
  Sender: FDA-Public Use
  Company Number: CH-CELGENEUS-151-50794-10080223

PATIENT

DRUGS (1)
  1. VIDAZA [Suspect]
     Dosage: 100 MILLIGRAM/SQ. METER
     Route: 058
     Dates: start: 20080901, end: 20100101

REACTIONS (31)
  - DISEASE RECURRENCE [None]
  - LEUKAEMIA [None]
  - RETINAL DETACHMENT [None]
  - FEBRILE NEUTROPENIA [None]
  - PERFORMANCE STATUS DECREASED [None]
  - CIRCULATORY COLLAPSE [None]
  - FATIGUE [None]
  - INFECTION [None]
  - NEOPLASM MALIGNANT [None]
  - HEADACHE [None]
  - PULMONARY EMBOLISM [None]
  - DISEASE PROGRESSION [None]
  - SEPTIC SHOCK [None]
  - UROSEPSIS [None]
  - NEUTROPENIA [None]
  - APLASIA [None]
  - CITROBACTER INFECTION [None]
  - GASTROINTESTINAL HAEMORRHAGE [None]
  - NERVOUS SYSTEM DISORDER [None]
  - HAEMORRHAGE [None]
  - DYSPNOEA [None]
  - ANAEMIA [None]
  - CARDIAC FAILURE [None]
  - TOXICITY TO VARIOUS AGENTS [None]
  - THROMBOCYTOPENIA [None]
  - NO THERAPEUTIC RESPONSE [None]
  - PNEUMONIA [None]
  - APPENDICITIS [None]
  - EPISTAXIS [None]
  - KLEBSIELLA INFECTION [None]
  - PNEUMONIA FUNGAL [None]
